FAERS Safety Report 23293061 (Version 1)
Quarter: 2023Q4

REPORT INFORMATION
  Report Type: Spontaneous
  Country: FR (occurrence: FR)
  Receive Date: 20231213
  Receipt Date: 20231213
  Transmission Date: 20240109
  Serious: Yes (Other)
  Sender: FDA-Public Use
  Company Number: None

PATIENT
  Age: 50 Year
  Sex: Male
  Weight: 125 kg

DRUGS (6)
  1. METHOTREXATE SODIUM [Suspect]
     Active Substance: METHOTREXATE SODIUM
     Indication: Psoriasis
     Dosage: 15 MG, WEEKLY
     Route: 048
     Dates: start: 2008, end: 2013
  2. HUMIRA [Suspect]
     Active Substance: ADALIMUMAB
     Indication: Psoriasis
     Dosage: 40 MG, CYCLIC (EVERY 2 WEEK)
     Route: 058
     Dates: start: 2013, end: 20180602
  3. STELARA [Suspect]
     Active Substance: USTEKINUMAB
     Indication: Psoriasis
     Dosage: 90 MG, CYCLIC (EVERY 4 WEEK)
     Route: 058
     Dates: start: 20180604, end: 20180701
  4. STELARA [Suspect]
     Active Substance: USTEKINUMAB
     Dosage: 90 MG, CYCLIC (EVERY 12 WEEK)
     Route: 058
     Dates: start: 20180701, end: 20210819
  5. STELARA [Suspect]
     Active Substance: USTEKINUMAB
     Dosage: 90 MG, CYCLIC (EVERY 12 WEEK)
     Route: 058
     Dates: start: 20211129, end: 20221106
  6. STELARA [Suspect]
     Active Substance: USTEKINUMAB
     Dosage: 90 MG, CYCLIC (EVERY 12 WEEK)
     Route: 058
     Dates: start: 20230208

REACTIONS (1)
  - Rectal adenocarcinoma [Not Recovered/Not Resolved]

NARRATIVE: CASE EVENT DATE: 20211024
